FAERS Safety Report 11870685 (Version 2)
Quarter: 2018Q2

REPORT INFORMATION
  Report Type: Spontaneous
  Country: JP (occurrence: JP)
  Receive Date: 20151228
  Receipt Date: 20180523
  Transmission Date: 20180711
  Serious: Yes (Other)
  Sender: FDA-Public Use
  Company Number: JP-ACTELION-A-CH2015-129048

PATIENT
  Age: 30 Year
  Sex: Female

DRUGS (2)
  1. EPOPROSTENOL ACT [Suspect]
     Active Substance: EPOPROSTENOL
     Dosage: UNK
     Route: 042
     Dates: start: 201509
  2. EPOPROSTENOL ACT [Suspect]
     Active Substance: EPOPROSTENOL
     Indication: PULMONARY ARTERIAL HYPERTENSION
     Dosage: UNK
     Route: 042
     Dates: start: 201507, end: 201509

REACTIONS (4)
  - Brain oedema [Unknown]
  - Altered state of consciousness [Unknown]
  - Seizure [Unknown]
  - Haemorrhage [Unknown]
